FAERS Safety Report 21187199 (Version 1)
Quarter: 2022Q3

REPORT INFORMATION
  Report Type: Spontaneous
  Country: IL (occurrence: IL)
  Receive Date: 20220808
  Receipt Date: 20220808
  Transmission Date: 20221027
  Serious: Yes (Life-Threatening)
  Sender: FDA-Public Use
  Company Number: IL-VERTEX PHARMACEUTICALS-2022-011672

PATIENT
  Sex: Male

DRUGS (1)
  1. TRIKAFTA [Suspect]
     Active Substance: ELEXACAFTOR\IVACAFTOR\TEZACAFTOR
     Indication: Cystic fibrosis
     Dosage: UNK FREQ
     Route: 048

REACTIONS (3)
  - Dyspnoea [Unknown]
  - Otospondylomegaepiphyseal dysplasia [Not Recovered/Not Resolved]
  - Poor feeding infant [Not Recovered/Not Resolved]

NARRATIVE: CASE EVENT DATE: 20220101
